FAERS Safety Report 8620064-9 (Version None)
Quarter: 2012Q3

REPORT INFORMATION
  Report Type: 
  Country: None (occurrence: None)
  Receive Date: 20120824
  Receipt Date: 20120821
  Transmission Date: 20120928
  Serious: Yes (Hospitalization)
  Sender: FDA-Public Use
  Company Number: JP-JNJFOC-20120811366

PATIENT
  Sex: Female
  Weight: 47 kg

DRUGS (19)
  1. GOLIMUMAB [Suspect]
     Route: 058
     Dates: start: 20120612
  2. METHOTREXATE [Suspect]
     Indication: RHEUMATOID ARTHRITIS
     Route: 048
     Dates: start: 20120301, end: 20120301
  3. DICLOFENAC SODIUM [Concomitant]
     Route: 054
  4. METHOTREXATE [Suspect]
     Route: 048
     Dates: start: 20120411, end: 20120419
  5. ASPARA-CA [Concomitant]
     Indication: OSTEOPOROSIS
  6. EDIROL [Concomitant]
     Indication: PROPHYLAXIS
     Route: 048
  7. REBAMIPIDE [Concomitant]
     Indication: PROPHYLAXIS
  8. METHOTREXATE [Suspect]
     Route: 048
     Dates: start: 20120507
  9. SULFASALAZINE [Concomitant]
     Indication: RHEUMATOID ARTHRITIS
     Dates: start: 20090514, end: 20120322
  10. MIZORIBINE [Concomitant]
     Indication: RHEUMATOID ARTHRITIS
     Route: 048
     Dates: start: 20090514
  11. METHOTREXATE [Suspect]
     Route: 048
     Dates: start: 20120308, end: 20120308
  12. PREDNISOLONE [Concomitant]
     Indication: RHEUMATOID ARTHRITIS
     Route: 048
     Dates: end: 20120326
  13. GOLIMUMAB [Suspect]
     Route: 058
     Dates: start: 20120417
  14. GOLIMUMAB [Suspect]
     Indication: RHEUMATOID ARTHRITIS
     Route: 058
     Dates: start: 20111206
  15. METHOTREXATE [Suspect]
     Route: 048
     Dates: start: 20120321, end: 20120321
  16. FLURBIPROFEN [Concomitant]
     Indication: RHEUMATOID ARTHRITIS
  17. CETRAXATE HYDROCHLORIDE [Concomitant]
     Indication: PROPHYLAXIS
     Route: 048
  18. ALFACALCIDOL [Concomitant]
     Indication: OSTEOPOROSIS
  19. CANDESARTAN CILEXETIL/HYDROCHLOROTHIAZIDE [Concomitant]
     Route: 048

REACTIONS (1)
  - URINARY TRACT INFECTION [None]
